FAERS Safety Report 5727131-8 (Version None)
Quarter: 2008Q2

REPORT INFORMATION
  Report Type: 
  Country: None (occurrence: None)
  Receive Date: 20080505
  Receipt Date: 20080414
  Transmission Date: 20081010
  Serious: Yes (Death, Other)
  Sender: FDA-Public Use
  Company Number: US-BAYER-US-2007-002078

PATIENT
  Age: 15 Year
  Sex: Male
  Weight: 35 kg

DRUGS (68)
  1. MAGNEVIST [Suspect]
     Indication: NUCLEAR MAGNETIC RESONANCE IMAGING
     Dosage: UNIT DOSE: 10 ML
     Dates: start: 20040522, end: 20040522
  2. MAGNEVIST [Suspect]
     Dosage: AS USED: 7.6 ML
     Dates: start: 20040611, end: 20040611
  3. MAGNEVIST [Suspect]
     Dosage: AS USED: 7 ML
     Dates: start: 20030109, end: 20030109
  4. OMNISCAN [Suspect]
     Indication: NUCLEAR MAGNETIC RESONANCE IMAGING
     Dates: start: 20030323, end: 20030323
  5. OMNISCAN [Suspect]
     Dates: start: 20041020, end: 20041020
  6. OMNISCAN [Suspect]
     Dates: start: 20040802, end: 20040802
  7. OMNISCAN [Suspect]
     Dates: start: 20030918, end: 20030918
  8. OMNISCAN [Suspect]
     Dosage: UNIT DOSE: 8 ML
     Dates: start: 20030730, end: 20030730
  9. OMNISCAN [Suspect]
     Dosage: UNIT DOSE: 8 ML
     Dates: start: 20040219, end: 20040219
  10. OMNISCAN [Suspect]
     Dosage: UNIT DOSE: 8.8 ML
     Dates: start: 20030825, end: 20030825
  11. OPTIMARK [Suspect]
     Indication: NUCLEAR MAGNETIC RESONANCE IMAGING
     Dosage: UNIT DOSE: 9 ML
     Dates: start: 20040514, end: 20040514
  12. PROHANCE [Suspect]
     Indication: NUCLEAR MAGNETIC RESONANCE IMAGING
  13. MULTIHANCE [Suspect]
     Indication: NUCLEAR MAGNETIC RESONANCE IMAGING
  14. MDP-SQUIBB [Concomitant]
     Dosage: UNIT DOSE: 10.4 MCI
     Route: 042
     Dates: start: 20010605, end: 20010605
  15. MDP-SQUIBB [Concomitant]
     Dosage: UNIT DOSE: 8.8 MCI
     Route: 042
     Dates: start: 20010824, end: 20010824
  16. MDP-SQUIBB [Concomitant]
     Dosage: UNIT DOSE: 11 MCI
     Dates: start: 20030324, end: 20030324
  17. DIGOXIN [Concomitant]
     Dosage: UNIT DOSE: 2 ML
  18. CAPTOPRIL [Concomitant]
     Dosage: UNIT DOSE: 12.5 MG
  19. ROCALTROL [Concomitant]
     Dosage: UNIT DOSE: 0.25 ?G
  20. BICITRA [Concomitant]
     Dates: end: 20030825
  21. BICITRA [Concomitant]
     Dosage: UNIT DOSE: 15 ML
  22. BICITRA [Concomitant]
     Dates: start: 20030825
  23. BICITRA [Concomitant]
     Dosage: UNIT DOSE: 11.7 MCI
  24. BICITRA [Concomitant]
     Dates: start: 20030825
  25. BICITRA [Concomitant]
     Dates: start: 20030825
  26. BICITRA [Concomitant]
     Dates: start: 20030825
  27. TUMS [Concomitant]
  28. VINCRISTINE [Concomitant]
     Dates: start: 20010101
  29. ADRIAMYCIN PFS [Concomitant]
     Dates: start: 20010101
  30. CYTOXAN [Concomitant]
     Dates: start: 20010101
  31. FILGRASTIM [Concomitant]
     Dosage: UNIT DOSE: 200 ?G
     Route: 058
     Dates: start: 20010607
  32. DEXAMETHASONE [Concomitant]
     Dosage: UNIT DOSE: 2 MG
     Route: 048
     Dates: start: 20010607
  33. RANITIDINE [Concomitant]
     Dosage: UNIT DOSE: 75 MG
     Route: 048
     Dates: start: 20010607
  34. METOCLOPRAMIDE [Concomitant]
  35. DIPHENHYDRAMINE HCL [Concomitant]
  36. ONDANSETRON [Concomitant]
  37. AMLODIPINE [Concomitant]
  38. EPOETIN ALFA [Concomitant]
     Dates: start: 20010603
  39. EPOETIN ALFA [Concomitant]
     Dates: start: 20040522, end: 20040523
  40. ALLOPURINOL [Concomitant]
     Dosage: UNIT DOSE: 50 MG
     Route: 048
     Dates: start: 20010531
  41. CALCIUM CARBONATE [Concomitant]
     Route: 048
     Dates: start: 20010530
  42. FERROUS SULFATE TAB [Concomitant]
     Route: 048
     Dates: start: 20010530
  43. MESNA [Concomitant]
  44. LASIX [Concomitant]
     Route: 042
     Dates: start: 20010607, end: 20010607
  45. TISSUE PLASMINOGEN ACTIVATOR, RECOMBINATIVE [Concomitant]
     Indication: CATHETER RELATED COMPLICATION
     Dosage: UNIT DOSE: 1 MG
     Route: 042
     Dates: start: 20010628, end: 20010628
  46. IFOSFAMIDE [Concomitant]
     Dates: start: 20010625, end: 20010627
  47. ETOPOSIDE [Concomitant]
     Dates: start: 20010625, end: 20010627
  48. FOLIC ACID [Concomitant]
  49. VITAMIN B COMPLEX CAP [Concomitant]
     Dates: start: 20040421
  50. BACTRIM [Concomitant]
  51. TYLENOL [Concomitant]
     Indication: ARTHRALGIA
  52. NEPHRO-VITE RX [Concomitant]
  53. SODIUM BICARBONATE [Concomitant]
  54. NEURONTIN [Concomitant]
     Indication: CONVULSION
     Dosage: UNIT DOSE: 100 MG
     Route: 048
     Dates: start: 20030401
  55. NEURONTIN [Concomitant]
     Dosage: UNIT DOSE: 50 MG
     Route: 048
     Dates: start: 20030301
  56. PHOSLO [Concomitant]
  57. TOPAMAX [Concomitant]
  58. CARBATROL [Concomitant]
     Dosage: UNIT DOSE: 100 MG
     Route: 048
     Dates: start: 20040612
  59. VICODIN [Concomitant]
  60. AMITRIPTLINE HCL [Concomitant]
  61. DEPAKOTE [Concomitant]
     Dates: start: 20040601
  62. RENAGEL [Concomitant]
     Dates: start: 20040601
  63. RED BLOOD CELLS [Concomitant]
     Dosage: UNIT DOSE: 300 ML
     Dates: start: 20020306, end: 20020306
  64. RED BLOOD CELLS [Concomitant]
     Dates: start: 20040923, end: 20040923
  65. RED BLOOD CELLS [Concomitant]
     Dosage: UNIT DOSE: 300 ML
     Dates: start: 20041223, end: 20041223
  66. RED BLOOD CELLS [Concomitant]
     Dates: start: 20041224, end: 20041224
  67. REGRANEX ^ORTHO-MCNEIL^ [Concomitant]
     Dates: start: 20041001
  68. TPN [Concomitant]
     Dates: start: 20040901

REACTIONS (2)
  - CARDIAC ARREST [None]
  - NEPHROGENIC SYSTEMIC FIBROSIS [None]
